FAERS Safety Report 8015940-4 (Version None)
Quarter: 2011Q4

REPORT INFORMATION
  Report Type: 
  Country: None (occurrence: None)
  Receive Date: 20111228
  Receipt Date: 20111228
  Transmission Date: 20120403
  Serious: Yes (Hospitalization)
  Sender: FDA-Public Use
  Company Number: None

PATIENT
  Age: 53 Year
  Sex: Female
  Weight: 46.8 kg

DRUGS (4)
  1. BONIVA [Suspect]
     Indication: OSTEOPOROSIS
     Dosage: BONIVA 3MG Q 3 MONTHS IV
     Route: 042
     Dates: start: 20090601, end: 20091101
  2. BONIVA [Suspect]
     Indication: OSTEOPOROSIS
     Dosage: BONIVA 3MG Q 3 MONTHS IV
     Route: 042
     Dates: start: 20100501, end: 20110801
  3. FOSAMAX [Suspect]
     Indication: OSTEOPOROSIS
     Dosage: FOSAMAX 70 MG WEEKLY PO
     Route: 048
     Dates: start: 20050901, end: 20090601
  4. FOSAMAX [Suspect]
     Indication: OSTEOPOROSIS
     Dosage: FOSAMAX 70 MG WEEKLY PO
     Route: 048
     Dates: start: 20091201, end: 20100601

REACTIONS (1)
  - FEMUR FRACTURE [None]
